FAERS Safety Report 21312604 (Version 1)
Quarter: 2022Q3

REPORT INFORMATION
  Report Type: Spontaneous
  Country: NL (occurrence: None)
  Receive Date: 20220909
  Receipt Date: 20220909
  Transmission Date: 20221027
  Serious: Yes (Life-Threatening, Hospitalization, Other)
  Sender: FDA-Public Use
  Company Number: 2022A309591

PATIENT
  Age: 63 Year
  Sex: Male
  Weight: 80 kg

DRUGS (16)
  1. QUETIAPINE [Suspect]
     Active Substance: QUETIAPINE
     Indication: Depression
     Dosage: 1 X PER DAY 1 PIECE
     Route: 065
     Dates: start: 20051111
  2. PFIZER-BIONTECH COVID-19 VACCINE [Suspect]
     Active Substance: TOZINAMERAN
     Indication: COVID-19 immunisation
     Route: 065
     Dates: start: 20220719
  3. OXAZEPAM [Concomitant]
     Active Substance: OXAZEPAM
     Dosage: TABLET, 10 MG (MILLIGRAM)
  4. EZETIMIBE [Concomitant]
     Active Substance: EZETIMIBE
     Dosage: TABLET, 10 MG (MILLIGRAM)
  5. FLUTICASONE PROPIONATE\SALMETEROL XINAFOATE [Concomitant]
     Active Substance: FLUTICASONE PROPIONATE\SALMETEROL XINAFOATE
     Dosage: 50/250UG/DO
  6. FUROSEMIDE [Concomitant]
     Active Substance: FUROSEMIDE
     Dosage: TABLET, 40 MG (MILLIGRAM)
  7. OXAZEPAM [Concomitant]
     Active Substance: OXAZEPAM
     Dosage: TABLET, 10 MG (MILLIGRAMS)
  8. METOPROLOL [Concomitant]
     Active Substance: METOPROLOL
     Dosage: CONTROLLED-RELEASE TABLET, 50 MG (MILLIGRAMS)
  9. INSULINE ASPART [Concomitant]
     Dosage: INJECTION FLUID, 100 UNITS/ML (UNITS PER MILLILITER)
  10. ATORVASTATIN [Concomitant]
     Active Substance: ATORVASTATIN
     Dosage: 1DD1T
  11. GLICLAZIDE [Concomitant]
     Active Substance: GLICLAZIDE
     Indication: Diabetes mellitus
     Dosage: 1DD1T
  12. SPIRONOLACTONE [Concomitant]
     Active Substance: SPIRONOLACTONE
     Indication: Hypertension
     Dosage: 1DD1T
  13. INSULIN GLARGINE [Concomitant]
     Active Substance: INSULIN GLARGINE
     Dosage: INJECTION FLUID, 100 UNITS/ML (UNITS PER MILLILITER), 100E/ML PEN 3ML
  14. PANTOPRAZOLE [Concomitant]
     Active Substance: PANTOPRAZOLE
     Dosage: 1DD1T
  15. METFORMIN [Concomitant]
     Active Substance: METFORMIN HYDROCHLORIDE
     Indication: Diabetes mellitus
     Dosage: 2DD1T
  16. PHENPROCOUMON [Concomitant]
     Active Substance: PHENPROCOUMON
     Dosage: TABLET, 3 MG (MILLIGRAM)

REACTIONS (1)
  - Ventricular tachycardia [Recovering/Resolving]

NARRATIVE: CASE EVENT DATE: 20220721
